FAERS Safety Report 6439054-X (Version None)
Quarter: 2009Q4

REPORT INFORMATION
  Report Type: 
  Country: None (occurrence: None)
  Receive Date: 20091113
  Receipt Date: 20091104
  Transmission Date: 20100525
  Serious: Yes (Life-Threatening, Other)
  Sender: FDA-Public Use
  Company Number: CH-ABBOTT-09P-151-0606859-00

PATIENT
  Age: 52 Year
  Sex: Male
  Weight: 70 kg

DRUGS (7)
  1. CLARITHROMYCIN [Suspect]
     Indication: PNEUMONIA BACTERIAL
     Route: 040
     Dates: start: 20091025, end: 20091026
  2. CORDARONE [Suspect]
     Indication: ARRHYTHMIA
     Route: 040
     Dates: start: 20091025, end: 20091028
  3. TAMIFLU [Suspect]
     Indication: H1N1 INFLUENZA
     Dosage: UNCLEAR IF 75MG EVERY OTHER DAY OR TWICE DAILY
     Route: 048
     Dates: start: 20091026, end: 20091030
  4. TAMIFLU [Suspect]
     Indication: PNEUMONIA
  5. IMIPENEM [Concomitant]
     Indication: PNEUMONIA BACTERIAL
     Dates: start: 20090125
  6. CLAMOXYL [Concomitant]
     Indication: DRUG USE FOR UNKNOWN INDICATION
  7. SERESTA [Concomitant]
     Indication: DRUG USE FOR UNKNOWN INDICATION

REACTIONS (4)
  - CONGESTIVE CARDIOMYOPATHY [None]
  - CORONARY ARTERY STENOSIS [None]
  - ELECTROCARDIOGRAM QT PROLONGED [None]
  - TORSADE DE POINTES [None]
